FAERS Safety Report 25848271 (Version 1)
Quarter: 2025Q3

REPORT INFORMATION
  Report Type: Spontaneous
  Country: US (occurrence: None)
  Receive Date: 20250924
  Receipt Date: 20250924
  Transmission Date: 20251021
  Serious: Yes (Life-Threatening, Hospitalization, Disabling)
  Sender: FDA-CTU
  Company Number: None

PATIENT
  Age: 87 Year
  Sex: Male

DRUGS (4)
  1. VYVGART HYTRULO [Suspect]
     Active Substance: EFGARTIGIMOD ALFA\HYALURONIDASE-QVFC
     Indication: Chronic inflammatory demyelinating polyradiculoneuropathy
     Dosage: FREQUENCY : WEEKLY;?
     Route: 058
     Dates: start: 20250614, end: 20250822
  2. METOPROLOL SUCCINATE [Concomitant]
     Active Substance: METOPROLOL SUCCINATE
  3. B COMPLEX VITAMIN [Concomitant]
  4. BIZ INJECTION [Concomitant]

REACTIONS (5)
  - Asthenia [None]
  - Dysstasia [None]
  - Mental status changes [None]
  - Pneumonia [None]
  - General physical health deterioration [None]
